FAERS Safety Report 4314810-2 (Version None)
Quarter: 2004Q1

REPORT INFORMATION
  Report Type: 
  Country: None (occurrence: None)
  Receive Date: 20040310
  Receipt Date: 20040219
  Transmission Date: 20041129
  Serious: No
  Sender: FDA-Public Use
  Company Number: PHRM2004FR00937

PATIENT
  Age: 60 Year
  Sex: Male

DRUGS (2)
  1. LAMISIL [Suspect]
     Indication: FUNGAL INFECTION
     Dosage: 250 MG, QD
     Route: 048
     Dates: start: 20040102, end: 20040102
  2. REQUIP [Suspect]
     Indication: PARKINSONISM
     Dosage: 3 DF, UNK
     Route: 048
     Dates: start: 19950101

REACTIONS (1)
  - SYNCOPE VASOVAGAL [None]
